FAERS Safety Report 24856004 (Version 1)
Quarter: 2025Q1

REPORT INFORMATION
  Report Type: Spontaneous
  Country: US (occurrence: None)
  Receive Date: 20250116
  Receipt Date: 20250116
  Transmission Date: 20250409
  Serious: No
  Sender: FDA-CTU
  Company Number: None

PATIENT
  Age: 83 Year
  Sex: Male
  Weight: 81.65 kg

DRUGS (8)
  1. GUAIFENESIN [Suspect]
     Active Substance: GUAIFENESIN
     Indication: Mucolytic treatment
     Dosage: 1-2 TABLETS TWICE  2 DAY  MOUTH ONLY TOOK 1 PILL PER DAY
     Route: 048
     Dates: start: 20241205, end: 20241207
  2. LEVOTHYROXINE [Concomitant]
     Active Substance: LEVOTHYROXINE
  3. PANTOPRAZOLE SODIUM [Concomitant]
     Active Substance: PANTOPRAZOLE SODIUM
  4. NEBIVOLOL [Concomitant]
     Active Substance: NEBIVOLOL
  5. LOSARTAN POTASSIUM [Concomitant]
     Active Substance: LOSARTAN POTASSIUM
  6. CETIRIZINE HYDROCHLORIDE [Concomitant]
     Active Substance: CETIRIZINE HYDROCHLORIDE
  7. ASPIRIN [Concomitant]
     Active Substance: ASPIRIN
  8. HERBAL EMEDIES [Concomitant]

REACTIONS (6)
  - Cough [None]
  - Abdominal pain [None]
  - Dyspnoea [None]
  - Therapy interrupted [None]
  - Drug rechallenge positive [None]
  - Contusion [None]

NARRATIVE: CASE EVENT DATE: 20241205
